FAERS Safety Report 6141167-7 (Version None)
Quarter: 2009Q2

REPORT INFORMATION
  Report Type: 
  Country: None (occurrence: None)
  Receive Date: 20090401
  Receipt Date: 20090401
  Transmission Date: 20091009
  Serious: Yes (Other)
  Sender: FDA-Public Use
  Company Number: None

PATIENT
  Age: 66 Year
  Sex: Female

DRUGS (2)
  1. PACLITAXEL [Suspect]
     Indication: BREAST CANCER
     Dosage: 100 MG/M2, WEEKLY
  2. TRASTUZUMAB [Concomitant]

REACTIONS (5)
  - ERYTHEMA [None]
  - PAIN [None]
  - PRURITUS [None]
  - SKIN TIGHTNESS [None]
  - SKIN TOXICITY [None]
